FAERS Safety Report 7830862-7 (Version None)
Quarter: 2011Q4

REPORT INFORMATION
  Report Type: 
  Country: None (occurrence: None)
  Receive Date: 20111021
  Receipt Date: 20111011
  Transmission Date: 20120403
  Serious: Yes (Other)
  Sender: FDA-Public Use
  Company Number: US-GILEAD-2009-0024769

PATIENT

DRUGS (10)
  1. PREDNISOLONE [Concomitant]
     Dates: start: 20090810, end: 20090815
  2. OMEPRAZOLE [Concomitant]
     Dates: start: 20090525, end: 20090609
  3. TENOFOVIR DISOPROXIL FUMARATE [Suspect]
     Indication: HIV INFECTION
     Dates: start: 20090202, end: 20090622
  4. LOPERAMIDE HCL [Concomitant]
     Dates: start: 20090605
  5. HYDROCORTISONE [Concomitant]
     Route: 042
     Dates: start: 20090810
  6. HYDROCORTISONE [Concomitant]
     Route: 061
     Dates: start: 20090810, end: 20090815
  7. METRONIDAZOLE [Concomitant]
     Dates: start: 20090605
  8. CHLORPHENIRAMINE MALEATE [Concomitant]
     Dates: start: 20090810
  9. CIPROFLOXACIN [Concomitant]
     Dates: start: 20090605
  10. FERROUS FUMARATE [Concomitant]
     Dates: start: 20090720, end: 20090803

REACTIONS (1)
  - ABORTION SPONTANEOUS [None]
